FAERS Safety Report 5278617-4 (Version None)
Quarter: 2007Q1

REPORT INFORMATION
  Report Type: 
  Country: None (occurrence: None)
  Receive Date: 20070328
  Receipt Date: 20070323
  Transmission Date: 20070707
  Serious: Yes (Hospitalization)
  Sender: FDA-Public Use
  Company Number: IT-GLAXOSMITHKLINE-B0463853A

PATIENT
  Age: 57 Year
  Sex: Male

DRUGS (4)
  1. RANIDIL [Suspect]
     Indication: GASTRITIS PROPHYLAXIS
     Dosage: 50MG TWICE PER DAY
     Route: 042
     Dates: start: 20070309, end: 20070309
  2. FLECTADOL [Suspect]
     Indication: CHEST PAIN
     Dosage: 500MG PER DAY
     Route: 042
     Dates: start: 20070309, end: 20070309
  3. ASPIRIN [Concomitant]
  4. MAGNESIUM CHLORIDE [Concomitant]

REACTIONS (3)
  - DYSPHONIA [None]
  - DYSPNOEA [None]
  - LARYNGEAL OEDEMA [None]
